FAERS Safety Report 20466715 (Version 1)
Quarter: 2022Q1

REPORT INFORMATION
  Report Type: Spontaneous
  Country: SE (occurrence: SE)
  Receive Date: 20220213
  Receipt Date: 20220213
  Transmission Date: 20220423
  Serious: Yes (Disabling)
  Sender: FDA-Public Use
  Company Number: None

PATIENT
  Age: 66 Year
  Sex: Female
  Weight: 84 kg

DRUGS (9)
  1. ETANERCEPT [Suspect]
     Active Substance: ETANERCEPT
     Indication: Rheumatoid arthritis
     Route: 030
     Dates: start: 20211122, end: 20220106
  2. METHOTREXATE [Concomitant]
     Active Substance: METHOTREXATE
     Indication: Product used for unknown indication
     Dosage: 2.5 MG 8 TABLET. WAS 7TH DAY
     Route: 048
     Dates: start: 20210101
  3. Omeprazol Sandoz [Concomitant]
     Indication: Product used for unknown indication
     Dosage: 20 MG 1 CAPSULE IN THE MORNING, ENTERO CAPSULE, HARD
     Route: 048
     Dates: start: 20110101
  4. Folsyra Vitabalans [Concomitant]
     Indication: Product used for unknown indication
     Dosage: 5 MG 1 TABLET DAILY, 2 FOLLOWING DAYS AFTER METHOTREXATE
     Route: 048
     Dates: start: 20110101
  5. TOLTERODIN STADA [Concomitant]
     Indication: Product used for unknown indication
     Dosage: 4 MG 1 CAPSULE IN THE MORNING, DEPOT CAPSULE, HARD
     Route: 048
     Dates: start: 20210920
  6. ACETAMINOPHEN [Concomitant]
     Active Substance: ACETAMINOPHEN
     Indication: Product used for unknown indication
     Dosage: 500 MG 2 TABLET IF NECESSARY, MAX 6 PCS/DAY
     Route: 048
     Dates: start: 20110101
  7. PREDNISOLONE [Concomitant]
     Active Substance: PREDNISOLONE
     Indication: Product used for unknown indication
     Dosage: 5 MG ACCORDING TO SCHEDULE/START 4 TABLET PER DAY
     Route: 048
     Dates: start: 20200827
  8. RECIKALC D FORTE [Concomitant]
     Indication: Product used for unknown indication
     Dosage: 500 MG/800 IE 1 CHEWABLE TABLET MORNING AND EVENING
     Route: 048
     Dates: start: 20110101
  9. IBUPROFEN [Concomitant]
     Active Substance: IBUPROFEN
     Indication: Product used for unknown indication
     Dosage: 800 MG MAX 2 TABLES. PER DAY, PROLONGED-RELEASE TABLET
     Route: 048
     Dates: start: 20110101

REACTIONS (18)
  - Peripheral swelling [Not Recovered/Not Resolved]
  - Erythema [Not Recovered/Not Resolved]
  - Sleep disorder [Not Recovered/Not Resolved]
  - Skin reaction [Not Recovered/Not Resolved]
  - Nail bed inflammation [Not Recovered/Not Resolved]
  - Cough [Not Recovered/Not Resolved]
  - Onychomadesis [Not Recovered/Not Resolved]
  - Fatigue [Not Recovered/Not Resolved]
  - Eye inflammation [Not Recovered/Not Resolved]
  - Rheumatoid arthritis [Not Recovered/Not Resolved]
  - Neuralgia [Not Recovered/Not Resolved]
  - Hypoaesthesia [Not Recovered/Not Resolved]
  - Alopecia [Not Recovered/Not Resolved]
  - Neuropathy peripheral [Not Recovered/Not Resolved]
  - Condition aggravated [Not Recovered/Not Resolved]
  - Paraesthesia [Not Recovered/Not Resolved]
  - Drug ineffective [Not Recovered/Not Resolved]
  - Product use issue [Unknown]

NARRATIVE: CASE EVENT DATE: 20210101
